FAERS Safety Report 7745167-2 (Version None)
Quarter: 2011Q3

REPORT INFORMATION
  Report Type: 
  Country: None (occurrence: None)
  Receive Date: 20110907
  Receipt Date: 20110823
  Transmission Date: 20111222
  Serious: Yes (Hospitalization)
  Sender: FDA-Public Use
  Company Number: 1000023249

PATIENT
  Age: 84 Year
  Sex: Female

DRUGS (7)
  1. MEMANTINE [Suspect]
     Indication: DEMENTIA ALZHEIMER'S TYPE
     Dosage: ORAL
     Route: 048
     Dates: start: 20110630
  2. MEMANTINE [Suspect]
     Indication: DEMENTIA ALZHEIMER'S TYPE
     Dosage: ORAL
     Route: 048
     Dates: end: 20110730
  3. NIFEDIPINE [Concomitant]
  4. OLMESARTAN MEDOXOMIL [Concomitant]
  5. LIVALO (PITAVASTATIN CALCIUM) (PITAVASTATIN CALCIUM) [Concomitant]
  6. LANSOPRAZOLE [Concomitant]
  7. GLACTIV (SITAGLIPTIN PHOSPHATE MONOHYDRATE) (SITAGLIPTIN PHOSPHATE MON [Concomitant]

REACTIONS (4)
  - RENAL IMPAIRMENT [None]
  - MALAISE [None]
  - ERYTHEMA [None]
  - ABNORMAL BEHAVIOUR [None]
